FAERS Safety Report 11495610 (Version 1)
Quarter: 2015Q3

REPORT INFORMATION
  Report Type: Spontaneous
  Country: US (occurrence: None)
  Receive Date: 20150910
  Receipt Date: 20150910
  Transmission Date: 20151125
  Serious: No
  Sender: FDA-Public Use
  Company Number: None

PATIENT
  Age: 68 Year
  Sex: Female
  Weight: 54.43 kg

DRUGS (3)
  1. GABAPENTIN. [Suspect]
     Active Substance: GABAPENTIN
     Indication: RESTLESS LEGS SYNDROME
     Dosage: 1-1ST NIGHT/2 - 2ND NIGHTS/ETC.
     Route: 048
     Dates: start: 20150902, end: 20150903
  2. CENTUM MULTIGUMMIES/CALCIUM + MAGNESIUM + VITAMIN D/HYSINE/BIOTIN + VITAMIN D3 [Concomitant]
  3. GABAPENTIN. [Suspect]
     Active Substance: GABAPENTIN
     Indication: INSOMNIA
     Dosage: 1-1ST NIGHT/2 - 2ND NIGHTS/ETC.
     Route: 048
     Dates: start: 20150902, end: 20150903

REACTIONS (2)
  - Nightmare [None]
  - Abdominal pain upper [None]

NARRATIVE: CASE EVENT DATE: 20150902
